FAERS Safety Report 18481767 (Version 4)
Quarter: 2021Q2

REPORT INFORMATION
  Report Type: Report from Study
  Country: BR (occurrence: BR)
  Receive Date: 20201109
  Receipt Date: 20210402
  Transmission Date: 20210717
  Serious: Yes (Life-Threatening)
  Sender: FDA-Public Use
  Company Number: BR-B.I. PHARMACEUTICALS,INC./RIDGEFIELD-2020-BI-059545

PATIENT
  Age: 59 Year
  Sex: Female
  Weight: 79 kg

DRUGS (4)
  1. JARDIANCE [Suspect]
     Active Substance: EMPAGLIFLOZIN
     Indication: DIABETES MELLITUS
     Dosage: ONE PER DAY
     Route: 048
     Dates: start: 20201021, end: 20201029
  2. SERETIDE [Concomitant]
     Active Substance: FLUTICASONE PROPIONATE\SALMETEROL XINAFOATE
     Indication: ASTHMA
     Dosage: SPRAY
     Dates: start: 2007
  3. GLIFAGE [Concomitant]
     Active Substance: METFORMIN HYDROCHLORIDE
     Indication: DIABETES MELLITUS
     Dosage: 2 TABLETS IN THE EVENING
     Route: 065
     Dates: start: 2008
  4. GLIFAGE [Concomitant]
     Active Substance: METFORMIN HYDROCHLORIDE
     Dosage: 2 TABLETS IN THE MORNING AND 2 TABLETS AT NIGHT
     Dates: start: 2020

REACTIONS (4)
  - Dysuria [Recovered/Resolved]
  - Vulvovaginal erythema [Recovered/Resolved]
  - Enlarged clitoris [Recovered/Resolved]
  - Vulval oedema [Recovered/Resolved]

NARRATIVE: CASE EVENT DATE: 20201021
